FAERS Safety Report 8760140 (Version 1)
Quarter: 2012Q4

REPORT INFORMATION
  Report Type: Spontaneous
  Country: US (occurrence: None)
  Receive Date: 20120828
  Receipt Date: 20120828
  Transmission Date: 20130627
  Serious: No
  Sender: FDA-Public Use
  Company Number: None

PATIENT
  Sex: Female
  Weight: 88 kg

DRUGS (1)
  1. PREVASTATIN SODIUM [Suspect]
     Indication: HEART ATTACK
     Dates: start: 20120710, end: 20120801

REACTIONS (3)
  - Musculoskeletal pain [None]
  - Movement disorder [None]
  - Sleep disorder [None]
